FAERS Safety Report 25676178 (Version 1)
Quarter: 2025Q3

REPORT INFORMATION
  Report Type: Spontaneous
  Country: US (occurrence: US)
  Receive Date: 20250813
  Receipt Date: 20250813
  Transmission Date: 20251021
  Serious: No
  Sender: ANI
  Company Number: US-ANIPHARMA-2025-US-011322

PATIENT
  Age: 48 Year
  Sex: Female

DRUGS (3)
  1. ARIMIDEX [Suspect]
     Active Substance: ANASTROZOLE
     Indication: Breast cancer female
     Route: 048
  2. HERCEPTIN [Concomitant]
     Active Substance: TRASTUZUMAB
  3. ZOMETA [Concomitant]
     Active Substance: ZOLEDRONIC ACID

REACTIONS (12)
  - Fatigue [Unknown]
  - Hot flush [Unknown]
  - Back pain [Unknown]
  - Lymphoedema [Unknown]
  - Chest pain [Unknown]
  - Neuropathy peripheral [Unknown]
  - Arthralgia [Unknown]
  - Red cell distribution width increased [Unknown]
  - CD4 lymphocytes decreased [Unknown]
  - Basophil percentage increased [Unknown]
  - Pruritus [Unknown]
  - Vulvovaginal dryness [Unknown]

NARRATIVE: CASE EVENT DATE: 20221013
